FAERS Safety Report 8862518 (Version 2)
Quarter: 2012Q4

REPORT INFORMATION
  Report Type: 
  Country: GB (occurrence: GB)
  Receive Date: 20121026
  Receipt Date: 20121107
  Transmission Date: 20130627
  Serious: No
  Sender: FDA-Public Use
  Company Number: GB-JNJFOC-20121001033

PATIENT
  Sex: Female

DRUGS (4)
  1. TOPIRAMATE [Suspect]
     Indication: EPILEPSY
     Route: 048
  2. ACETAZOLAMIDE [Suspect]
     Indication: EPILEPSY
     Route: 065
  3. TEGRETOL [Suspect]
     Indication: EPILEPSY
     Route: 065
  4. ZONISAMIDE [Suspect]
     Indication: EPILEPSY
     Route: 065

REACTIONS (1)
  - Exposure during pregnancy [Recovered/Resolved]
